FAERS Safety Report 24554757 (Version 1)
Quarter: 2024Q4

REPORT INFORMATION
  Report Type: Spontaneous
  Country: US (occurrence: US)
  Receive Date: 20241028
  Receipt Date: 20241028
  Transmission Date: 20250115
  Serious: Yes (Life-Threatening, Hospitalization, Other)
  Sender: SANDOZ
  Company Number: US-002147023-NVSC2024US207577

PATIENT
  Age: 7 Decade
  Sex: Female

DRUGS (6)
  1. DOCETAXEL [Suspect]
     Active Substance: DOCETAXEL
     Indication: Leiomyosarcoma metastatic
     Route: 065
  2. DOXORUBICIN [Suspect]
     Active Substance: DOXORUBICIN
     Indication: Leiomyosarcoma metastatic
     Dosage: UNK
     Route: 065
  3. GEMCITABINE [Suspect]
     Active Substance: GEMCITABINE
     Indication: Leiomyosarcoma metastatic
     Dosage: UNK
     Route: 065
  4. PAZOPANIB [Suspect]
     Active Substance: PAZOPANIB
     Indication: Leiomyosarcoma metastatic
     Dosage: UNK
     Route: 065
  5. SPIRONOLACTONE [Suspect]
     Active Substance: SPIRONOLACTONE
     Indication: Chronic left ventricular failure
     Dosage: UNK
     Route: 065
  6. TORSEMIDE [Suspect]
     Active Substance: TORSEMIDE
     Indication: Chronic left ventricular failure
     Dosage: UNK
     Route: 065

REACTIONS (9)
  - Acute coronary syndrome [Recovering/Resolving]
  - Rebound effect [Recovering/Resolving]
  - Cardiac failure acute [Recovering/Resolving]
  - Cardiomyopathy [Recovering/Resolving]
  - Atrial fibrillation [Recovering/Resolving]
  - Acute myocardial infarction [Recovering/Resolving]
  - Chronic left ventricular failure [Recovering/Resolving]
  - Drug ineffective [Unknown]
  - Disease progression [Unknown]
